FAERS Safety Report 17137540 (Version 1)
Quarter: 2019Q4

REPORT INFORMATION
  Report Type: Spontaneous
  Country: CN (occurrence: CN)
  Receive Date: 20191210
  Receipt Date: 20191210
  Transmission Date: 20200122
  Serious: Yes (Hospitalization)
  Sender: FDA-Public Use
  Company Number: CN-BAXTER-2019BAX024849

PATIENT
  Age: 56 Year
  Sex: Female
  Weight: 70 kg

DRUGS (6)
  1. ENDOXAN [Suspect]
     Active Substance: CYCLOPHOSPHAMIDE
     Indication: BREAST CANCER
     Dosage: ON DAY 1, ENDOXAN 1 G + 0.9% NACL (SODIUM CHLORIDE) 500 ML
     Route: 041
     Dates: start: 20191001, end: 20191001
  2. STERILE WATER FOR INJECTION [Suspect]
     Active Substance: WATER
     Indication: MEDICATION DILUTION
     Dosage: ON DAYS 1 TO 2, AI DA SHENG 70 MG + WATER FOR INJECTION 100 ML
     Route: 041
     Dates: start: 20191001, end: 20191002
  3. 0.9% SODIUM CHLORIDE INJECTION [Suspect]
     Active Substance: SODIUM CHLORIDE
     Indication: MEDICATION DILUTION
     Dosage: ON DAY 1, ENDOXAN 1 G + 0.9% NACL 500 ML
     Route: 041
     Dates: start: 20191001, end: 20191001
  4. 5% GLUCOSE  INJECTION [Suspect]
     Active Substance: DEXTROSE
     Indication: MEDICATION DILUTION
     Dosage: ON DAYS 1 TO 2, AO NUO XIAN 750 MG + 5% GLUCOSE 75 ML
     Route: 041
     Dates: start: 20191001, end: 20191002
  5. AI DA SHENG [EPIRUBICIN HYDROCHLORIDE] [Suspect]
     Active Substance: EPIRUBICIN HYDROCHLORIDE
     Indication: BREAST CANCER
     Dosage: ON DAYS 1 TO 2, AI DA SHENG 70 MG + WATER FOR INJECTION 100 ML
     Route: 041
     Dates: start: 20191001, end: 20191002
  6. AO NUO XIAN [Suspect]
     Active Substance: DEXRAZOXANE
     Indication: BREAST CANCER
     Dosage: ON DAYS 1 TO 2, AO NUO XIAN 750 MG + 5% GLUCOSE 75 ML
     Route: 041
     Dates: start: 20191001, end: 20191002

REACTIONS (1)
  - Bone marrow failure [Recovered/Resolved]

NARRATIVE: CASE EVENT DATE: 20191011
